FAERS Safety Report 6059272-2 (Version None)
Quarter: 2009Q1

REPORT INFORMATION
  Report Type: 
  Country: None (occurrence: None)
  Receive Date: 20090128
  Receipt Date: 20090128
  Transmission Date: 20090719
  Serious: Yes (Hospitalization)
  Sender: FDA-Public Use
  Company Number: None

PATIENT
  Age: 83 Year

DRUGS (1)
  1. ERTAPENEM [Suspect]
     Indication: URINARY TRACT INFECTION
     Dates: start: 20080919, end: 20080921

REACTIONS (5)
  - AGITATION [None]
  - CONVULSION [None]
  - MENTAL STATUS CHANGES [None]
  - SLUGGISHNESS [None]
  - SPEECH DISORDER [None]
